FAERS Safety Report 6312700-7 (Version None)
Quarter: 2009Q3

REPORT INFORMATION
  Report Type: 
  Country: None (occurrence: None)
  Receive Date: 20090818
  Receipt Date: 20090810
  Transmission Date: 20100115
  Serious: Yes (Hospitalization)
  Sender: FDA-Public Use
  Company Number: CO-ELI_LILLY_AND_COMPANY-CO200908002485

PATIENT
  Age: 49 Year
  Sex: Female

DRUGS (9)
  1. BYETTA [Suspect]
     Indication: TYPE 2 DIABETES MELLITUS
  2. COUMADIN [Concomitant]
     Dosage: 2.5 MG, UNKNOWN
     Route: 065
  3. COUMADIN [Concomitant]
     Dosage: 5 MG, UNKNOWN
     Route: 065
  4. PLAVIX [Concomitant]
     Dosage: UNK, UNKNOWN
     Route: 065
  5. EUTIROX [Concomitant]
     Dosage: UNK, UNKNOWN
     Route: 065
  6. PANTOPRAZOLE SODIUM [Concomitant]
     Dosage: UNK, UNKNOWN
     Route: 065
  7. PREGABALIN [Concomitant]
     Dosage: UNK, UNKNOWN
     Route: 065
  8. CRESTOR [Concomitant]
     Dosage: UNK, UNKNOWN
     Route: 065
  9. FONDAPARINUX [Concomitant]
     Dosage: UNK, UNKNOWN
     Route: 065

REACTIONS (4)
  - ASTHENIA [None]
  - BLOOD ELECTROLYTES DECREASED [None]
  - DIARRHOEA [None]
  - OFF LABEL USE [None]
